FAERS Safety Report 8550351-4 (Version None)
Quarter: 2012Q3

REPORT INFORMATION
  Report Type: 
  Country: None (occurrence: None)
  Receive Date: 20120730
  Receipt Date: 20120725
  Transmission Date: 20120928
  Serious: Yes (Other)
  Sender: FDA-Public Use
  Company Number: RU-PFIZER INC-2012179842

PATIENT
  Age: 65 Year
  Sex: Male

DRUGS (1)
  1. CARDURA [Suspect]
     Indication: PROSTATIC ADENOMA
     Dosage: 1 MG, 1/2 OF THE TABLET, 1X/DAY
     Route: 048
     Dates: start: 20120713, end: 20120714

REACTIONS (2)
  - BLOOD PRESSURE INCREASED [None]
  - PRODUCT COUNTERFEIT [None]
